FAERS Safety Report 9667727 (Version 1)
Quarter: 2013Q4

REPORT INFORMATION
  Report Type: Spontaneous
  Country: ZA (occurrence: ZA)
  Receive Date: 20131104
  Receipt Date: 20131104
  Transmission Date: 20140711
  Serious: Yes (Hospitalization)
  Sender: FDA-Public Use
  Company Number: ZA-B.I. PHARMACEUTICALS,INC./RIDGEFIELD-2013-BI-34913ZA

PATIENT
  Age: 82 Year
  Sex: Female

DRUGS (12)
  1. PRADAXA [Suspect]
     Indication: CEREBROVASCULAR ACCIDENT PROPHYLAXIS
     Dosage: 220 MG
     Route: 048
     Dates: start: 20130902
  2. PRADAXA [Suspect]
     Indication: ATRIAL FIBRILLATION
  3. HEXARONE [Concomitant]
  4. SIMVACOR [Concomitant]
  5. COZAAR [Concomitant]
  6. DEGRANOL [Concomitant]
  7. CLOPIDOGREL [Concomitant]
  8. CARLOC [Concomitant]
  9. ISMO [Concomitant]
  10. LOSARTAN [Concomitant]
  11. WARFARIN [Concomitant]
  12. BILOCOR [Concomitant]
     Indication: ATRIAL FIBRILLATION

REACTIONS (6)
  - Cerebrovascular accident [Not Recovered/Not Resolved]
  - Blood pressure decreased [Unknown]
  - Ventricular tachycardia [Unknown]
  - Muscle twitching [Unknown]
  - Confusional state [Unknown]
  - Disorientation [Unknown]
